FAERS Safety Report 8768177 (Version 2)
Quarter: 2013Q4

REPORT INFORMATION
  Report Type: Spontaneous
  Country: US (occurrence: US)
  Receive Date: 20120904
  Receipt Date: 20131101
  Transmission Date: 20140711
  Serious: No
  Sender: FDA-Public Use
  Company Number: US-009507513-1208USA011838

PATIENT
  Sex: 0

DRUGS (1)
  1. TINACTIN LIQUID SPRAY [Suspect]
     Indication: PRURITUS
     Dosage: UNK, UNKNOWN
     Route: 048

REACTIONS (3)
  - Burning sensation [Unknown]
  - Drug ineffective [Unknown]
  - Expired drug administered [Unknown]
